FAERS Safety Report 16362305 (Version 3)
Quarter: 2019Q4

REPORT INFORMATION
  Report Type: Spontaneous
  Country: CA (occurrence: CA)
  Receive Date: 20190528
  Receipt Date: 20191023
  Transmission Date: 20200122
  Serious: Yes (Disabling, Other)
  Sender: FDA-Public Use
  Company Number: CA-PFIZER INC-2017534391

PATIENT
  Age: 63 Year
  Sex: Female

DRUGS (3)
  1. DEPO-MEDROL [Suspect]
     Active Substance: METHYLPREDNISOLONE ACETATE
     Indication: TRIGGER FINGER
     Dosage: 15 MG, UNK
     Route: 030
     Dates: start: 20171121
  2. CANNABIS SATIVA [Concomitant]
     Active Substance: CANNABIS SATIVA FLOWERING TOP
  3. SYNTHROID [Concomitant]
     Active Substance: LEVOTHYROXINE SODIUM

REACTIONS (10)
  - Arthralgia [Unknown]
  - Product use in unapproved indication [Unknown]
  - Erythema [Recovered/Resolved with Sequelae]
  - Dactylitis [Recovered/Resolved]
  - Joint stiffness [Not Recovered/Not Resolved]
  - Tenosynovitis [Unknown]
  - Joint swelling [Unknown]
  - Off label use [Unknown]
  - Peripheral swelling [Not Recovered/Not Resolved]
  - Pain in extremity [Recovered/Resolved with Sequelae]

NARRATIVE: CASE EVENT DATE: 20171121
